FAERS Safety Report 23363967 (Version 1)
Quarter: 2024Q1

REPORT INFORMATION
  Report Type: Report from Study
  Country: US (occurrence: US)
  Receive Date: 20240104
  Receipt Date: 20240104
  Transmission Date: 20240410
  Serious: Yes (Other)
  Sender: FDA-Public Use
  Company Number: US-ABBVIE-5566603

PATIENT
  Sex: Female

DRUGS (1)
  1. HUMIRA [Suspect]
     Active Substance: ADALIMUMAB
     Indication: Hidradenitis
     Route: 058
     Dates: start: 20210107

REACTIONS (8)
  - Lupus-like syndrome [Unknown]
  - Raynaud^s phenomenon [Unknown]
  - Migraine [Unknown]
  - Discharge [Unknown]
  - Ear pain [Not Recovered/Not Resolved]
  - Sinus congestion [Unknown]
  - Skin exfoliation [Unknown]
  - Pruritus [Unknown]
